FAERS Safety Report 9031613 (Version 1)
Quarter: 2013Q1

REPORT INFORMATION
  Report Type: Spontaneous
  Country: DE (occurrence: DE)
  Receive Date: 20130124
  Receipt Date: 20130124
  Transmission Date: 20140127
  Serious: Yes (Other)
  Sender: FDA-Public Use
  Company Number: DE-UCBSA-075983

PATIENT
  Age: 39 Year
  Sex: Male
  Weight: 80 kg

DRUGS (4)
  1. KEPPRA [Suspect]
     Dosage: UNKNOWN QUANTITY OF THERAPEUTIC DOSE
     Dates: start: 20130116
  2. SEROQUEL [Suspect]
     Dosage: STRENGTH: 400; 2 TABLETS; MIX UP; TOTAL AMOUNT: 800 MG
     Dates: start: 20130116
  3. RISPERIDONE [Suspect]
     Dosage: STRENGTH: 2; 1 TABLET/TERAPEUTIC DOSE; TOTALAMOUNT: 2 MG
     Dates: start: 20130116
  4. VALPROATE [Suspect]
     Dosage: UNKNOWN QUANTITY OF THERAPEUTIC DOSE
     Dates: start: 20130116

REACTIONS (1)
  - Accidental exposure to product [Unknown]
